FAERS Safety Report 5162009-2 (Version None)
Quarter: 2006Q4

REPORT INFORMATION
  Report Type: 
  Country: None (occurrence: None)
  Receive Date: 20061121
  Receipt Date: 20061114
  Transmission Date: 20070319
  Serious: Yes (Death, Hospitalization)
  Sender: FDA-Public Use
  Company Number: 2006-03-0919

PATIENT
  Age: 69 Year
  Sex: Male
  Weight: 85 kg

DRUGS (1)
  1. TEMODAL [Suspect]
     Indication: GLIOMA
     Dosage: 205  MG;QD;PO
     Route: 048
     Dates: start: 20060210, end: 20060326

REACTIONS (5)
  - ANGIOPATHY [None]
  - CARDIAC FAILURE [None]
  - DISTURBANCE IN ATTENTION [None]
  - EPILEPSY [None]
  - NEOPLASM PROGRESSION [None]
